FAERS Safety Report 9478331 (Version 3)
Quarter: 2013Q4

REPORT INFORMATION
  Report Type: Report from Study
  Country: US (occurrence: US)
  Receive Date: 20130827
  Receipt Date: 20131016
  Transmission Date: 20140711
  Serious: Yes (Hospitalization)
  Sender: FDA-Public Use
  Company Number: US-JNJFOC-20130812841

PATIENT
  Age: 45 Year
  Sex: Female
  Weight: 94.35 kg

DRUGS (15)
  1. REMICADE [Suspect]
     Indication: RHEUMATOID ARTHRITIS
     Route: 042
     Dates: start: 20130926
  2. REMICADE [Suspect]
     Indication: RHEUMATOID ARTHRITIS
     Route: 042
     Dates: start: 201305, end: 20130907
  3. REMICADE [Suspect]
     Indication: RHEUMATOID ARTHRITIS
     Route: 042
     Dates: start: 20130305, end: 201304
  4. LAMICTAL [Concomitant]
     Indication: CONVULSION
     Route: 048
     Dates: start: 1997
  5. FOLIC ACID [Concomitant]
     Indication: CONVULSION
     Route: 048
     Dates: start: 1997
  6. FOLIC ACID [Concomitant]
     Indication: DEPRESSION
     Route: 048
     Dates: start: 1997
  7. POTASSIUM [Concomitant]
     Route: 048
     Dates: start: 2010
  8. METHOTREXATE [Concomitant]
     Indication: RHEUMATOID ARTHRITIS
     Route: 048
     Dates: start: 2010
  9. CYMBALTA [Concomitant]
     Indication: ANXIETY
     Route: 048
     Dates: start: 2010
  10. CYMBALTA [Concomitant]
     Indication: DEPRESSION
     Route: 048
     Dates: start: 2010
  11. ASPIRIN [Concomitant]
     Indication: CARDIAC DISORDER
     Route: 048
     Dates: start: 2011
  12. MULTIVITAMINS [Concomitant]
     Route: 048
     Dates: start: 2012
  13. FUROSEMIDE [Concomitant]
     Indication: ANAEMIA
     Route: 048
     Dates: start: 2011
  14. BIRTH CONTROL PILLS UNSPECIFIED [Concomitant]
     Indication: CONTRACEPTION
     Route: 048
     Dates: start: 2011
  15. WATER PILL NOS [Concomitant]
     Indication: FLUID RETENTION
     Route: 048
     Dates: start: 2012

REACTIONS (5)
  - Sepsis [Recovering/Resolving]
  - Urinary tract infection [Recovering/Resolving]
  - Dehydration [Recovering/Resolving]
  - Dizziness [Recovering/Resolving]
  - Asthenia [Recovering/Resolving]
